FAERS Safety Report 6864017-X (Version None)
Quarter: 2010Q3

REPORT INFORMATION
  Report Type: 
  Country: None (occurrence: None)
  Receive Date: 20100721
  Receipt Date: 20080313
  Transmission Date: 20110219
  Serious: No
  Sender: FDA-Public Use
  Company Number: US-PFIZER INC-2008023900

PATIENT
  Sex: Female
  Weight: 63.5 kg

DRUGS (2)
  1. CHANTIX [Suspect]
     Indication: SMOKING CESSATION THERAPY
     Route: 048
     Dates: start: 20080114
  2. GENERAL NUTRIENTS [Concomitant]
     Route: 048

REACTIONS (9)
  - AGGRESSION [None]
  - APATHY [None]
  - ASTHENIA [None]
  - DEPRESSION [None]
  - DRUG INTOLERANCE [None]
  - FATIGUE [None]
  - IRRITABILITY [None]
  - UNEVALUABLE EVENT [None]
  - WEIGHT INCREASED [None]
